FAERS Safety Report 13393629 (Version 3)
Quarter: 2017Q4

REPORT INFORMATION
  Report Type: Spontaneous
  Country: US (occurrence: US)
  Receive Date: 20170331
  Receipt Date: 20171023
  Transmission Date: 20180320
  Serious: Yes (Other)
  Sender: FDA-Public Use
  Company Number: US-TAIHO ONCOLOGY INC-EU-2017-00523

PATIENT
  Age: 62 Year
  Sex: Female
  Weight: 89.44 kg

DRUGS (8)
  1. METOPROLOL SUCCINATE. [Concomitant]
     Active Substance: METOPROLOL SUCCINATE
     Route: 048
  2. LONSURF [Suspect]
     Active Substance: TIPIRACIL HYDROCHLORIDE\TRIFLURIDINE
     Indication: RECTAL CANCER
     Route: 048
     Dates: start: 20170104, end: 2017
  3. ELIQUIS [Concomitant]
     Active Substance: APIXABAN
     Indication: ATRIAL FIBRILLATION
     Route: 048
  4. LONSURF [Suspect]
     Active Substance: TIPIRACIL HYDROCHLORIDE\TRIFLURIDINE
     Indication: METASTASES TO LUNG
  5. ALPRAZOLAM. [Concomitant]
     Active Substance: ALPRAZOLAM
     Route: 048
  6. AMLODIPINE BESILATE [Concomitant]
     Active Substance: AMLODIPINE BESYLATE
     Route: 048
  7. DIGOXIN. [Concomitant]
     Active Substance: DIGOXIN
     Route: 048
  8. ZUPLENZ [Concomitant]
     Active Substance: ONDANSETRON
     Dosage: 2 FILM EVERY 8HRS FOR 2 DAYS AND PLACE ON TOP OF THE TONGUE WHERE IT WILL DISSOLVE
     Route: 048

REACTIONS (4)
  - Rectal haemorrhage [Unknown]
  - Vomiting [Unknown]
  - Acute kidney injury [Unknown]
  - Disease progression [Unknown]

NARRATIVE: CASE EVENT DATE: 201703
